FAERS Safety Report 7704731-7 (Version None)
Quarter: 2011Q3

REPORT INFORMATION
  Report Type: 
  Country: None (occurrence: None)
  Receive Date: 20110823
  Receipt Date: 20110815
  Transmission Date: 20111222
  Serious: Yes (Other)
  Sender: FDA-Public Use
  Company Number: PHHY2011CH74254

PATIENT
  Age: 58 Year
  Sex: Female

DRUGS (15)
  1. MYCOPHENOLATE MOFETIL [Concomitant]
     Indication: IMMUNOSUPPRESSION
  2. CALCIUM CARBONATE [Concomitant]
     Dosage: UNK G, QD
  3. SULFAMETHOXAZOLE AND TRIMETHOPRIM [Concomitant]
  4. VALACICLOVIR [Concomitant]
     Dosage: 500 MG, BID
  5. AMOXICILLIN AND CLAVULANATE POTASSIUM [Suspect]
  6. OMEPRAZOLE [Concomitant]
     Dosage: 40 MG, BID
  7. DOMPERIDONE [Concomitant]
     Dosage: 19 MG, TID
  8. AMPHOTERICIN B [Concomitant]
     Dosage: 100 MG, QD
  9. VALGANCICLOVIR [Concomitant]
     Dosage: 450 MG, QD
  10. PREDNISONE TAB [Concomitant]
     Indication: IMMUNOSUPPRESSION
  11. METAMIZOLE [Concomitant]
     Dosage: 400 MG, QID
  12. CIPROFLOXACIN [Suspect]
     Indication: URINARY TRACT INFECTION
     Dosage: 500 MG, BID
  13. MAGNESIUM [Concomitant]
     Dosage: 5 MMOL, TID
  14. VITAMIN D [Concomitant]
     Dosage: 0.25 UG, QD
  15. ITRACONAZOLE [Concomitant]
     Dosage: 200 MG, BID

REACTIONS (5)
  - SKIN LESION [None]
  - SKIN ATROPHY [None]
  - PHOTODERMATOSIS [None]
  - OEDEMA PERIPHERAL [None]
  - ERYTHEMA [None]
